FAERS Safety Report 7322929-7 (Version None)
Quarter: 2011Q1

REPORT INFORMATION
  Report Type: 
  Country: None (occurrence: None)
  Receive Date: 20110301
  Receipt Date: 20110215
  Transmission Date: 20110831
  Serious: Yes (Other)
  Sender: FDA-Public Use
  Company Number: PHHY2010GB06364

PATIENT
  Sex: Male

DRUGS (1)
  1. CLOZARIL [Suspect]
     Indication: SCHIZOPHRENIA
     Dosage: UNK
     Dates: start: 20070111

REACTIONS (10)
  - SICKLE CELL ANAEMIA [None]
  - GASTROINTESTINAL CARCINOMA [None]
  - COLON CANCER [None]
  - NEUTROPHIL COUNT INCREASED [None]
  - WHITE BLOOD CELL COUNT DECREASED [None]
  - HAEMORRHAGE [None]
  - PLATELET COUNT INCREASED [None]
  - IRON DEFICIENCY ANAEMIA [None]
  - HAEMOGLOBIN DECREASED [None]
  - WHITE BLOOD CELL COUNT INCREASED [None]
